FAERS Safety Report 22088338 (Version 1)
Quarter: 2023Q1

REPORT INFORMATION
  Report Type: Spontaneous
  Country: US (occurrence: None)
  Receive Date: 20230310
  Receipt Date: 20230310
  Transmission Date: 20230418
  Serious: No
  Sender: FDA-Public Use
  Company Number: None

PATIENT
  Sex: Male
  Weight: 102.06 kg

DRUGS (16)
  1. ABIRATERONE ACETATE [Suspect]
     Active Substance: ABIRATERONE ACETATE
     Indication: Prostate cancer
     Dosage: FREQUENCY : DAILY;?
     Route: 048
     Dates: start: 202301
  2. ATORVASTATIN [Concomitant]
     Active Substance: ATORVASTATIN
  3. AZELASTINE [Concomitant]
     Active Substance: AZELASTINE
  4. BIOTIN [Concomitant]
     Active Substance: BIOTIN
  5. DOCUSATE [Concomitant]
     Active Substance: DOCUSATE
  6. DOXAZOSIN [Concomitant]
     Active Substance: DOXAZOSIN MESYLATE
  7. FINASTERIDE [Concomitant]
     Active Substance: FINASTERIDE
  8. FLUTICASONE [Concomitant]
     Active Substance: FLUTICASONE
  9. LORAZEPAM [Concomitant]
     Active Substance: LORAZEPAM
  10. MONTELUKAST [Concomitant]
     Active Substance: MONTELUKAST SODIUM
  11. Multivitamin [Concomitant]
  12. NOVOLOG [Concomitant]
     Active Substance: INSULIN ASPART
  13. PREDNISONE [Concomitant]
     Active Substance: PREDNISONE
  14. PREGABALIN [Concomitant]
     Active Substance: PREGABALIN
  15. SODIUM BICARBONATE [Concomitant]
     Active Substance: SODIUM BICARBONATE
  16. VITAMIN D3 [Concomitant]
     Active Substance: CHOLECALCIFEROL

REACTIONS (2)
  - Disease progression [None]
  - Therapy cessation [None]
